FAERS Safety Report 8672436 (Version 3)
Quarter: 2013Q2

REPORT INFORMATION
  Report Type: Spontaneous
  Country: US (occurrence: US)
  Receive Date: 20120719
  Receipt Date: 20130523
  Transmission Date: 20140414
  Serious: Yes (Hospitalization)
  Sender: FDA-Public Use
  Company Number: US-US-EMD SERONO, INC.-7146963

PATIENT
  Age: 50 Year
  Sex: Female
  Weight: 52 kg

DRUGS (2)
  1. REBIF [Suspect]
     Indication: MULTIPLE SCLEROSIS
     Route: 058
     Dates: start: 20050607, end: 201205
  2. OXYBUTYNIN [Concomitant]
     Indication: MULTIPLE SCLEROSIS

REACTIONS (3)
  - Endometrial cancer [Recovered/Resolved]
  - Cervix carcinoma [Recovered/Resolved]
  - Feeling abnormal [Unknown]
